FAERS Safety Report 4559946-6 (Version None)
Quarter: 2005Q1

REPORT INFORMATION
  Report Type: 
  Country: None (occurrence: None)
  Receive Date: 20050124
  Receipt Date: 20041207
  Transmission Date: 20050727
  Serious: No
  Sender: FDA-Public Use
  Company Number: C-04-0066

PATIENT

DRUGS (1)
  1. CHLORAL HYDRATE SYRUP, USP, 500MG/5ML, MGP PRODUCT CODE: 8533 [Suspect]

REACTIONS (1)
  - ORAL DISCOMFORT [None]
